FAERS Safety Report 6046961-9 (Version None)
Quarter: 2009Q1

REPORT INFORMATION
  Report Type: 
  Country: None (occurrence: None)
  Receive Date: 20090122
  Receipt Date: 20090121
  Transmission Date: 20090719
  Serious: Yes (Death)
  Sender: FDA-Public Use
  Company Number: CN-ROCHE-608523

PATIENT
  Age: 12 Year
  Sex: Female
  Weight: 50 kg

DRUGS (2)
  1. ROCEPHIN [Suspect]
     Indication: PNEUMONIA
     Route: 041
     Dates: start: 20090113, end: 20090113
  2. GLUCOSE INJECTION [Concomitant]
     Indication: PNEUMONIA
     Dosage: IV DRIP VELOCITY AS APPROXIMATELY 80 DRIPS PER MINUTE.
     Route: 041
     Dates: start: 20090113, end: 20090113

REACTIONS (1)
  - DRUG HYPERSENSITIVITY [None]
